FAERS Safety Report 4288708-2 (Version None)
Quarter: 2004Q1

REPORT INFORMATION
  Report Type: 
  Country: None (occurrence: None)
  Receive Date: 20040209
  Receipt Date: 20040129
  Transmission Date: 20041129
  Serious: Yes (Disabling, Other)
  Sender: FDA-Public Use
  Company Number: WAES 0402GBR00013

PATIENT
  Age: 40 Year
  Sex: Male

DRUGS (3)
  1. ACETAMINOPHEN AND CODEINE PHOSPHATE [Concomitant]
     Dates: end: 20040118
  2. MOMETASONE FUROATE [Concomitant]
     Route: 055
     Dates: start: 20031020
  3. VIOXX [Suspect]
     Indication: JOINT INJURY
     Route: 048
     Dates: start: 20040113, end: 20040118

REACTIONS (2)
  - DIARRHOEA HAEMORRHAGIC [None]
  - MALAISE [None]
